FAERS Safety Report 17756997 (Version 1)
Quarter: 2020Q2

REPORT INFORMATION
  Report Type: Spontaneous
  Country: NL (occurrence: NL)
  Receive Date: 20200507
  Receipt Date: 20200507
  Transmission Date: 20200714
  Serious: Yes (Other)
  Sender: FDA-Public Use
  Company Number: NL-TEVA-765899ACC

PATIENT
  Age: 67 Year
  Sex: Female

DRUGS (12)
  1. METHOTREXATE. [Suspect]
     Active Substance: METHOTREXATE
     Indication: FIBROMYALGIA
  2. FUROSEMIDE. [Concomitant]
     Active Substance: FUROSEMIDE
     Dosage: MG, ACCORDING TO SCHEDULE?THERAPY START DATE :ASKED BUT UNKNOWN ?THERAPY END DATE :ASKED BUT UNKNOWN
     Route: 048
  3. FOLIUMZUUR [Concomitant]
     Active Substance: FOLIC ACID
     Dosage: ONCE WEEKLY 10MG
     Route: 048
     Dates: start: 20160929, end: 20170330
  4. VITAMINE B COMPLEX [Concomitant]
     Active Substance: CYANOCOBALAMIN\PYRIDOXINE HYDROCHLORIDE\RIBOFLAVIN\SODIUM PANTOTHENATE\THIAMINE HYDROCHLORIDE\VITAMIN B COMPLEX
     Dosage: UNKNOWN, ACCORDING TO SCHEDULE?THERAPY START DATE :ASKED BUT UNKNOWN ?THERAPY END DATE :ASKED BUT UN
     Route: 048
  5. SPIRONOLACTON [Concomitant]
     Active Substance: SPIRONOLACTONE
     Dosage: MG, ACCORDING TO SCHEDULE?THERAPY START DATE :ASKED BUT UNKNOWN ?THERAPY END DATE :ASKED BUT UNKNOWN
     Route: 048
  6. PREDNISOLON [Concomitant]
     Active Substance: PREDNISOLONE
     Dosage: ONCE DAILY 0.5MG
     Route: 048
     Dates: start: 20160907
  7. METHOTREXATE. [Suspect]
     Active Substance: METHOTREXATE
     Indication: RHEUMATOID ARTHRITIS
     Dosage: ONCE WEEKLY 15MG
     Route: 048
     Dates: start: 20161229, end: 20170330
  8. VALSARTAN. [Concomitant]
     Active Substance: VALSARTAN
     Dosage: MG, ACCORDING TO SCHEDULE
     Route: 048
  9. OMEPRAZOL [Concomitant]
     Active Substance: OMEPRAZOLE
     Dosage: MG, ACCORDING TO SCHEDULE?THERAPY START DATE :ASKED BUT UNKNOWN ?THERAPY END DATE :ASKED BUT UNKNOWN
     Route: 048
  10. SALBUTAMOL [Concomitant]
     Active Substance: ALBUTEROL
     Dosage: UNKNOWN, ACCORDING TO SCHEDULE?THERAPY START DATE :ASKED BUT UNKNOWN ?THERAPY END DATE :ASKED BUT UN
     Route: 055
  11. CALCI CHEW D3 [Concomitant]
     Active Substance: CALCIUM CARBONATE\CHOLECALCIFEROL
     Dosage: 1 DOSAGE FORMS DAILY; ONCE DAILY 500/800MG/IE
     Route: 048
  12. METOPROLOL. [Concomitant]
     Active Substance: METOPROLOL
     Dosage: MG, ACCORDING TO SCHEDULE?THERAPY START DATE :ASKED BUT UNKNOWN ?THERAPY END DATE :ASKED BUT UNKNOWN
     Route: 048

REACTIONS (1)
  - Respiratory tract infection [Recovering/Resolving]

NARRATIVE: CASE EVENT DATE: 20170125
